FAERS Safety Report 4294342-0 (Version None)
Quarter: 2004Q1

REPORT INFORMATION
  Report Type: 
  Country: None (occurrence: None)
  Receive Date: 20040211
  Receipt Date: 20031007
  Transmission Date: 20041129
  Serious: Yes (Hospitalization)
  Sender: FDA-Public Use
  Company Number: A0429390A

PATIENT
  Age: 63 Year
  Sex: Female

DRUGS (2)
  1. MELPHALAN INJECTION (MELPHALAN) [Suspect]
     Indication: MULTIPLE MYELOMA
     Dosage: 344 MG, INTRAVENOUS
     Route: 042
     Dates: start: 20030817, end: 20030817
  2. THALIDOMIDE (THALIDOMIDE) [Suspect]
     Dosage: 50 MG PER DAY, ORAL
     Route: 048
     Dates: start: 20030620, end: 20030627

REACTIONS (5)
  - ABDOMINAL PAIN LOWER [None]
  - DIVERTICULUM [None]
  - ENTEROCOCCAL BACTERAEMIA [None]
  - FEBRILE NEUTROPENIA [None]
  - WHITE BLOOD CELL COUNT DECREASED [None]
